FAERS Safety Report 15451320 (Version 2)
Quarter: 2018Q4

REPORT INFORMATION
  Report Type: Spontaneous
  Country: TR (occurrence: TR)
  Receive Date: 20181001
  Receipt Date: 20181012
  Transmission Date: 20190204
  Serious: Yes (Other)
  Sender: FDA-Public Use
  Company Number: TR-EMD SERONO-9045415

PATIENT
  Age: 15 Year
  Sex: Male
  Weight: 76 kg

DRUGS (12)
  1. GADOVIST [Concomitant]
     Active Substance: GADOBUTROL
     Indication: HYPOGONADISM
     Dosage: STRENGTH: 604.72 MG ML, 1 FLACON
     Dates: start: 20180425
  2. PEREBRON                           /00131802/ [Concomitant]
     Indication: UPPER RESPIRATORY TRACT INFECTION
     Dosage: 120 CC. SYRUP
     Dates: start: 20171025
  3. OVITRELLE [Suspect]
     Active Substance: CHORIOGONADOTROPIN ALFA
     Indication: HYPOGONADISM
     Dosage: 0.5 ONE PREFILLED SYRINGE
     Route: 058
     Dates: start: 20180905
  4. DIPROSAN [Concomitant]
     Indication: ARTHRALGIA
  5. DIPROSAN [Concomitant]
     Indication: MYALGIA
     Dosage: AMPOULE
     Dates: start: 20180227
  6. LHRH FERRING [Concomitant]
     Indication: HYPOGONADISM
     Dosage: INJECTABLE SOLUTION 1 AMPOULE
     Dates: start: 20180110
  7. OVITRELLE [Suspect]
     Active Substance: CHORIOGONADOTROPIN ALFA
     Dosage: 0.5 ONE PREFILLED SYRINGE
     Route: 058
     Dates: start: 20180508
  8. KLAMER [Concomitant]
     Indication: UPPER RESPIRATORY TRACT INFECTION
     Dosage: 14 FILM TABLET
     Dates: start: 20180522
  9. MUSCOFLEX [Concomitant]
     Active Substance: THIOCOLCHICOSIDE
     Indication: MYALGIA
     Dosage: DUO GEL
     Dates: start: 20180227
  10. SEFSIDAL [Concomitant]
     Indication: UPPER RESPIRATORY TRACT INFECTION
     Dosage: 14 FTB
     Dates: start: 20171025
  11. MUSCOFLEX [Concomitant]
     Active Substance: THIOCOLCHICOSIDE
     Indication: ARTHRALGIA
  12. PAROL [Concomitant]
     Active Substance: ACETAMINOPHEN
     Indication: UPPER RESPIRATORY TRACT INFECTION
     Dates: start: 20171025

REACTIONS (6)
  - Dysuria [Recovering/Resolving]
  - Eosinophil count increased [Recovering/Resolving]
  - Mean cell volume decreased [Recovering/Resolving]
  - Off label use [Not Recovered/Not Resolved]
  - Groin pain [Recovering/Resolving]
  - Genital discharge [Recovering/Resolving]

NARRATIVE: CASE EVENT DATE: 20180508
